FAERS Safety Report 21555238 (Version 2)
Quarter: 2022Q4

REPORT INFORMATION
  Report Type: Spontaneous
  Country: GB (occurrence: GB)
  Receive Date: 20221104
  Receipt Date: 20221114
  Transmission Date: 20230113
  Serious: Yes (Death)
  Sender: FDA-Public Use
  Company Number: GB-MYLANLABS-2022M1121182

PATIENT
  Age: 49 Year
  Sex: Male
  Weight: 144.8 kg

DRUGS (11)
  1. CLOZARIL [Suspect]
     Active Substance: CLOZAPINE
     Indication: Schizophrenia
     Dosage: 250 MILLIGRAM, QD (250 MILLIGRAM, ON)
     Route: 048
     Dates: start: 20181106
  2. AMISULPRIDE [Concomitant]
     Active Substance: AMISULPRIDE
     Indication: Schizophrenia
     Dosage: 500 GRAM, QD (200MG OM - 300MG ON)
     Route: 048
     Dates: start: 2019
  3. FLUOXETINE [Concomitant]
     Active Substance: FLUOXETINE HYDROCHLORIDE
     Indication: Depression
     Dosage: 60 MILLIGRAM, QD (60MG OM)
     Route: 048
     Dates: start: 2019
  4. DIAZEPAM [Concomitant]
     Active Substance: DIAZEPAM
     Indication: Anxiety
     Dosage: 1 MILLIGRAM, QD (1 MG ON)
     Route: 048
     Dates: start: 2019
  5. SCOPOLAMINE HYDROBROMIDE [Concomitant]
     Active Substance: SCOPOLAMINE HYDROBROMIDE
     Indication: Adverse drug reaction
     Dosage: 300 MICROGRAM, TID (300 MCG TDS)
     Route: 048
     Dates: start: 2019
  6. PROCYCLIDINE [Concomitant]
     Active Substance: PROCYCLIDINE
     Indication: Adverse drug reaction
     Dosage: 5 MILLIGRAM, QD (5 MG OM)
     Route: 048
     Dates: start: 2019
  7. SENNA [Concomitant]
     Active Substance: SENNA LEAF\SENNOSIDES\SENNOSIDES A AND B
     Indication: Adverse drug reaction
     Dosage: 15 MILLIGRAM, QD (15 MG ON)
     Route: 048
     Dates: start: 2019
  8. POLYETHYLENE GLYCOLS [Concomitant]
     Active Substance: POLYETHYLENE GLYCOLS
     Indication: Adverse drug reaction
     Dosage: 1 DOSAGE FORM, BID (1 SACHET BD)
     Route: 048
     Dates: start: 2019
  9. METFORMIN [Concomitant]
     Active Substance: METFORMIN HYDROCHLORIDE
     Indication: Type 2 diabetes mellitus
     Dosage: 1000 MILLIGRAM, BID
     Route: 048
  10. GLICLAZIDE [Concomitant]
     Active Substance: GLICLAZIDE
     Indication: Type 2 diabetes mellitus
     Dosage: 40 MILLIGRAM, QD (40 MG OM)
     Route: 048
  11. DAPAGLIFLOZIN [Concomitant]
     Active Substance: DAPAGLIFLOZIN
     Indication: Type 2 diabetes mellitus
     Dosage: 10 MILLIGRAM, QD (10 MG OM)
     Route: 048

REACTIONS (3)
  - Biliary obstruction [Fatal]
  - Abdominal pain [Unknown]
  - Jaundice [Unknown]

NARRATIVE: CASE EVENT DATE: 20220101
